FAERS Safety Report 5412045-3 (Version None)
Quarter: 2007Q3

REPORT INFORMATION
  Report Type: 
  Country: None (occurrence: None)
  Receive Date: 20070813
  Receipt Date: 20070809
  Transmission Date: 20080115
  Serious: Yes (Life-Threatening, Hospitalization, Other)
  Sender: FDA-Public Use
  Company Number: US-RB-007660-07

PATIENT
  Sex: Male

DRUGS (2)
  1. SUBUTEX [Suspect]
     Route: 064
     Dates: start: 20061101, end: 20070803
  2. MORPHINE [Concomitant]
     Indication: DRUG WITHDRAWAL SYNDROME NEONATAL
     Dosage: BABY WAS PUT ON TITRATING DOSES OF MORPHINE
     Route: 048
     Dates: start: 20070803, end: 20070806

REACTIONS (3)
  - DRUG EXPOSURE DURING PREGNANCY [None]
  - DRUG WITHDRAWAL SYNDROME NEONATAL [None]
  - UMBILICAL CORD AROUND NECK [None]
